FAERS Safety Report 9632510 (Version 1)
Quarter: 2013Q4

REPORT INFORMATION
  Report Type: Spontaneous
  Country: US (occurrence: US)
  Receive Date: 20131018
  Receipt Date: 20131018
  Transmission Date: 20140711
  Serious: Yes (Other)
  Sender: FDA-Public Use
  Company Number: US-BRISTOL-MYERS SQUIBB COMPANY-19523968

PATIENT
  Age: 69 Year
  Sex: Female
  Weight: 44.44 kg

DRUGS (4)
  1. PACLITAXEL [Suspect]
     Indication: OVARIAN CANCER
  2. CARBOPLATIN [Concomitant]
     Indication: OVARIAN CANCER
  3. MAGNESIUM CITRATE [Concomitant]
  4. DESYREL [Concomitant]
     Dosage: B-12 INJECTION ONCE A MONTH

REACTIONS (7)
  - Pain [Unknown]
  - Malaise [Unknown]
  - Constipation [Unknown]
  - Nausea [Unknown]
  - Vomiting [Unknown]
  - Feeling hot [Unknown]
  - Eyelid oedema [Unknown]
